FAERS Safety Report 26059830 (Version 2)
Quarter: 2025Q4

REPORT INFORMATION
  Report Type: Spontaneous
  Country: US (occurrence: US)
  Receive Date: 20251118
  Receipt Date: 20251121
  Transmission Date: 20260118
  Serious: No
  Sender: ROCHE
  Company Number: US-ROCHE-10000434397

PATIENT
  Sex: Female

DRUGS (3)
  1. XOLAIR [Suspect]
     Active Substance: OMALIZUMAB
     Indication: Dermatitis atopic
     Route: 058
     Dates: start: 202509
  2. XOLAIR [Suspect]
     Active Substance: OMALIZUMAB
  3. BENLYSTA [Concomitant]
     Active Substance: BELIMUMAB

REACTIONS (5)
  - Urticaria [Unknown]
  - Swelling face [Unknown]
  - Peripheral swelling [Unknown]
  - Peripheral swelling [Unknown]
  - Off label use [Unknown]
